FAERS Safety Report 4389060-4 (Version None)
Quarter: 2004Q2

REPORT INFORMATION
  Report Type: 
  Country: None (occurrence: None)
  Receive Date: 20040628
  Receipt Date: 20040616
  Transmission Date: 20050107
  Serious: No
  Sender: FDA-Public Use
  Company Number: 04P-163-0264210-00

PATIENT
  Age: 18 Year
  Sex: Male

DRUGS (2)
  1. ULTANE [Suspect]
     Indication: ANAESTHESIA
     Dosage: ONCE, INHALATION
     Dates: start: 20040406, end: 20040406
  2. BUPIVACAINE [Concomitant]

REACTIONS (3)
  - COUGH [None]
  - POST PROCEDURAL COMPLICATION [None]
  - PULMONARY HAEMORRHAGE [None]
